FAERS Safety Report 21151172 (Version 3)
Quarter: 2022Q3

REPORT INFORMATION
  Report Type: Spontaneous
  Country: FR (occurrence: FR)
  Receive Date: 20220730
  Receipt Date: 20220920
  Transmission Date: 20221027
  Serious: Yes (Hospitalization)
  Sender: FDA-Public Use
  Company Number: None

PATIENT
  Age: 57 Year
  Sex: Female

DRUGS (16)
  1. LANSOPRAZOLE [Suspect]
     Active Substance: LANSOPRAZOLE
     Indication: Prophylaxis
     Dosage: UNIT DOSE : 15 MG , FREQUENCY TIME :  1 DAY
     Dates: start: 202202
  2. VALGANCICLOVIR [Suspect]
     Active Substance: VALGANCICLOVIR
     Indication: Antiviral treatment
     Dosage: UNIT DOSE :450 MG  , FREQUENCY TIME : 1 DAY , DURATION : 120 DAYS
     Route: 065
     Dates: start: 20220223, end: 20220624
  3. PREDNISONE [Suspect]
     Active Substance: PREDNISONE
     Indication: Hypercalcaemia
     Dosage: UNIT DOSE : 65 MG , FREQUENCY TIME : 1 DAY
     Dates: start: 202201
  4. BACTRIM [Suspect]
     Active Substance: SULFAMETHOXAZOLE\TRIMETHOPRIM
     Indication: Opportunistic infection prophylaxis
     Dosage: UNIT DOSE : 3 DF  , FREQUENCY TIME : 1 WEEKS
     Dates: start: 20220118
  5. CELLCEPT [Suspect]
     Active Substance: MYCOPHENOLATE MOFETIL
     Indication: Prophylaxis against transplant rejection
     Dosage: UNIT DOSE : 750MG , FREQUENCY TIME : 1 DAY
     Dates: start: 201301
  6. WARFARIN SODIUM [Suspect]
     Active Substance: WARFARIN SODIUM
     Indication: Phlebitis
     Dosage: UNIT DOSE : 3MG , FREQUENCY TIME : 1 DAY , DURATION : 4 MONTH
     Dates: start: 202202, end: 20220627
  7. PAMIDRONATE DISODIUM [Suspect]
     Active Substance: PAMIDRONATE DISODIUM
     Indication: Osteoporosis
     Dosage: PAMIDRONATE DE SODIUM ,UNIT DOSE :1 DF  , FREQUENCY TIME : 1 TOTAL
     Dates: start: 202201, end: 202201
  8. NEORAL [Suspect]
     Active Substance: CYCLOSPORINE
     Indication: Prophylaxis against transplant rejection
     Dosage: UNIT DOSE :150 MG  , FREQUENCY TIME : 1 DAY
     Dates: start: 2008
  9. PRAVASTATIN SODIUM [Concomitant]
     Active Substance: PRAVASTATIN SODIUM
     Indication: Product used for unknown indication
     Dosage: PRAVASTATINE SODIQUE ,UNIT DOSE : 40 MG , FREQUENCY TIME : 1 DAY
     Dates: start: 2008
  10. FUROSEMIDE [Concomitant]
     Active Substance: FUROSEMIDE
     Indication: Product used for unknown indication
     Dosage: UNIT DOSE : 40 MG , FREQUENCY TIME : 1 DAY ,THERAPY END DATE : ASKU
     Dates: start: 2012
  11. RAMIPRIL [Concomitant]
     Active Substance: RAMIPRIL
     Indication: Product used for unknown indication
     Dosage: UNIT DOSE : 2.5  MG , FREQUENCY TIME : 1 DAY, THERAPY END DATE : ASKU
     Dates: start: 2021
  12. FEBUXOSTAT [Concomitant]
     Active Substance: FEBUXOSTAT
     Indication: Product used for unknown indication
     Dosage: UNIT DOSE : 80 MG , FREQUENCY TIME : 1 DAY , THERAPY END DATE : ASKU
     Dates: start: 2013
  13. CALCIUM PHOSPHATE, DIBASIC, ANHYDROUS\MAGNESIUM GLYCEROPHOSPHATE\PHOSP [Concomitant]
     Active Substance: CALCIUM PHOSPHATE, DIBASIC, ANHYDROUS\MAGNESIUM GLYCEROPHOSPHATE\PHOSPHORIC ACID\SODIUM PHOSPHATE, D
     Indication: Product used for unknown indication
     Dosage: UNIT DOSE :150 GTT  , FREQUENCY TIME : 1 DAY , THERAPY START DATE : ASKU
  14. NEBIVOLOL [Concomitant]
     Active Substance: NEBIVOLOL
     Indication: Product used for unknown indication
     Dosage: UNIT DOSE : 1.5 MG , FREQUENCY TIME : 1 DAY
     Dates: start: 2008
  15. FOLIC ACID [Concomitant]
     Active Substance: FOLIC ACID
     Indication: Product used for unknown indication
     Dosage: ACIDE FOLIQUE , UNIT DOSE : 5 MG , FREQUENCY TIME : 1 DAY
     Dates: start: 202201
  16. POLYETHYLENE GLYCOLS [Concomitant]
     Active Substance: POLYETHYLENE GLYCOLS
     Indication: Product used for unknown indication
     Dosage: MACROGOL (STEARATE DE) , UNIT DOSE : 1 DF , FREQUENCY TIME : 1 DAY , THERAPY START DATE : ASKU

REACTIONS (1)
  - Anaemia macrocytic [Recovering/Resolving]

NARRATIVE: CASE EVENT DATE: 20220425
